FAERS Safety Report 9714099 (Version 2)
Quarter: 2015Q3

REPORT INFORMATION
  Report Type: Spontaneous
  Country: US (occurrence: US)
  Receive Date: 20131126
  Receipt Date: 20150803
  Transmission Date: 20151125
  Serious: No
  Sender: FDA-Public Use
  Company Number: US-GILEAD-2008-0018869

PATIENT
  Age: 74 Year
  Sex: Female
  Weight: 113.4 kg

DRUGS (18)
  1. LETAIRIS [Suspect]
     Active Substance: AMBRISENTAN
     Indication: PULMONARY ARTERIAL HYPERTENSION
     Route: 048
     Dates: start: 20080728
  2. COUMADIN [Concomitant]
     Active Substance: WARFARIN SODIUM
  3. LEVODOPA/CARBIDOPA [Concomitant]
  4. TYLENOL [Concomitant]
     Active Substance: ACETAMINOPHEN
  5. FUROSEMIDE. [Concomitant]
     Active Substance: FUROSEMIDE
  6. COLACE [Concomitant]
     Active Substance: DOCUSATE SODIUM
  7. PRILOSEC [Concomitant]
     Active Substance: OMEPRAZOLE MAGNESIUM
  8. SPIRONOLACTONE. [Concomitant]
     Active Substance: SPIRONOLACTONE
  9. ALBUTEROL. [Concomitant]
     Active Substance: ALBUTEROL
  10. MULTIVITAMIN [Concomitant]
     Active Substance: VITAMINS
  11. MIRAPEX [Concomitant]
     Active Substance: PRAMIPEXOLE DIHYDROCHLORIDE
  12. POTASSIUM CHLORIDE. [Concomitant]
     Active Substance: POTASSIUM CHLORIDE
  13. DIGOXIN. [Concomitant]
     Active Substance: DIGOXIN
  14. LUTEIN [Concomitant]
     Active Substance: LUTEIN
  15. FOSAMAX [Concomitant]
     Active Substance: ALENDRONATE SODIUM
  16. LIPITOR [Concomitant]
     Active Substance: ATORVASTATIN CALCIUM
  17. GABAPENTIN. [Concomitant]
     Active Substance: GABAPENTIN
  18. FENTANYL. [Concomitant]
     Active Substance: FENTANYL

REACTIONS (2)
  - Glossodynia [None]
  - Swelling [None]
